FAERS Safety Report 9170843 (Version 1)
Quarter: 2013Q1

REPORT INFORMATION
  Report Type: Spontaneous
  Country: US (occurrence: US)
  Receive Date: 20130319
  Receipt Date: 20130319
  Transmission Date: 20140127
  Serious: Yes (Other)
  Sender: FDA-Public Use
  Company Number: US-PFIZER INC-2013085001

PATIENT
  Sex: Female

DRUGS (1)
  1. ESTRING [Suspect]
     Dosage: UNK
     Dates: start: 2008

REACTIONS (3)
  - Sinusitis [Unknown]
  - Bronchitis [Unknown]
  - Vulvovaginal mycotic infection [Unknown]
